FAERS Safety Report 24546495 (Version 1)
Quarter: 2024Q4

REPORT INFORMATION
  Report Type: Report from Study
  Country: CA (occurrence: CA)
  Receive Date: 20241024
  Receipt Date: 20241024
  Transmission Date: 20250114
  Serious: Yes (Hospitalization)
  Sender: SK LIFE SCIENCE
  Company Number: CA-SK LIFE SCIENCE, INC.-SKPVG-2024-000657

PATIENT

DRUGS (16)
  1. XCOPRI [Suspect]
     Active Substance: CENOBAMATE
     Indication: Epilepsy
     Dosage: 12.5 MILLIGRAM, DAILY
     Route: 048
     Dates: start: 20240305, end: 2024
  2. XCOPRI [Suspect]
     Active Substance: CENOBAMATE
     Dosage: 25 MILLIGRAM, DAILY
     Route: 048
     Dates: start: 2024, end: 2024
  3. XCOPRI [Suspect]
     Active Substance: CENOBAMATE
     Dosage: 50 MILLIGRAM, DAILY
     Route: 048
     Dates: start: 2024, end: 2024
  4. XCOPRI [Suspect]
     Active Substance: CENOBAMATE
     Dosage: 75 MILLIGRAM, DAILY
     Route: 048
     Dates: start: 2024, end: 2024
  5. XCOPRI [Suspect]
     Active Substance: CENOBAMATE
     Dosage: 100 MILLIGRAM, DAILY
     Route: 048
     Dates: start: 2024, end: 2024
  6. XCOPRI [Suspect]
     Active Substance: CENOBAMATE
     Dosage: 125 MILLIGRAM, DAILY
     Route: 048
     Dates: start: 2024, end: 2024
  7. XCOPRI [Suspect]
     Active Substance: CENOBAMATE
     Dosage: 150 MILLIGRAM, DAILY
     Route: 048
     Dates: start: 2024, end: 2024
  8. XCOPRI [Suspect]
     Active Substance: CENOBAMATE
     Dosage: 100 MILLIGRAM, DAILY
     Route: 048
     Dates: start: 20240612, end: 2024
  9. XCOPRI [Suspect]
     Active Substance: CENOBAMATE
     Dosage: 125 MILLIGRAM, QD
     Route: 048
     Dates: start: 2024, end: 2024
  10. XCOPRI [Suspect]
     Active Substance: CENOBAMATE
     Dosage: 100 MILLIGRAM, QD
     Route: 048
     Dates: start: 2024
  11. DILANTIN [Suspect]
     Active Substance: PHENYTOIN
     Indication: Product used for unknown indication
     Dosage: 150 MG PO AM AND 200 MG PO HS
     Route: 048
  12. DILANTIN [Suspect]
     Active Substance: PHENYTOIN
     Dosage: 200 MG PO AM AND 150 MG PO HS
     Route: 048
     Dates: end: 202406
  13. DILANTIN [Suspect]
     Active Substance: PHENYTOIN
     Dosage: 100MG AM/100MG PM
     Route: 048
     Dates: start: 202406
  14. TOPIRAMATE [Concomitant]
     Active Substance: TOPIRAMATE
     Indication: Product used for unknown indication
     Dosage: 250 MILLIGRAM, BID
     Route: 065
  15. ESLICARBAZEPINE [Concomitant]
     Active Substance: ESLICARBAZEPINE
     Indication: Product used for unknown indication
     Dosage: 1000 MG AM, 1200 MG PM
     Route: 065
  16. ESLICARBAZEPINE [Concomitant]
     Active Substance: ESLICARBAZEPINE
     Indication: Product used for unknown indication

REACTIONS (16)
  - Muscular weakness [Unknown]
  - Fall [Recovered/Resolved]
  - Vision blurred [Recovered/Resolved]
  - Vomiting [Recovered/Resolved]
  - Nausea [Recovered/Resolved]
  - Balance disorder [Recovered/Resolved]
  - Decreased appetite [Recovered/Resolved]
  - Asthenia [Recovered/Resolved]
  - Dysarthria [Recovered/Resolved]
  - Labelled drug-drug interaction issue [Recovered/Resolved]
  - Gait disturbance [Recovered/Resolved]
  - Seizure [Recovered/Resolved]
  - Off label use [Unknown]
  - Injury [Unknown]
  - Weight decreased [Unknown]
  - Dizziness [Unknown]

NARRATIVE: CASE EVENT DATE: 20240101
